FAERS Safety Report 4740759-7 (Version None)
Quarter: 2005Q3

REPORT INFORMATION
  Report Type: 
  Country: None (occurrence: None)
  Receive Date: 20050804
  Receipt Date: 20050516
  Transmission Date: 20060218
  Serious: No
  Sender: FDA-Public Use
  Company Number: FACT0500304

PATIENT
  Age: 75 Year
  Sex: Male
  Weight: 89.8 kg

DRUGS (8)
  1. FACTIVE [Suspect]
     Indication: RESPIRATORY TRACT INFECTION BACTERIAL
     Dosage: 320 MG, QD, ORAL
     Route: 048
     Dates: start: 20050513
  2. PHENOBARBITAL TAB [Concomitant]
  3. DILANTIN   /AUS/ (PHENYTOIN SODIUM) [Concomitant]
  4. ACTIFED [Concomitant]
  5. VITAMIN B12 [Concomitant]
  6. VITAMIN A AND D (ERGOCALCIFEROL, RETINOL) [Concomitant]
  7. VITAMIN E [Concomitant]
  8. ASPIRIN [Concomitant]

REACTIONS (1)
  - HYPERHIDROSIS [None]
